FAERS Safety Report 14538948 (Version 1)
Quarter: 2018Q1

REPORT INFORMATION
  Report Type: Spontaneous
  Country: US (occurrence: US)
  Receive Date: 20180216
  Receipt Date: 20180216
  Transmission Date: 20180509
  Serious: No
  Sender: FDA-Public Use
  Company Number: US-PFIZER INC-2018068881

PATIENT
  Age: 64 Year
  Sex: Male

DRUGS (2)
  1. CORTEF [Suspect]
     Active Substance: HYDROCORTISONE
     Dosage: 10 MG, 2X/DAY
  2. CORTEF [Suspect]
     Active Substance: HYDROCORTISONE
     Indication: ADRENAL INSUFFICIENCY
     Dosage: 20 MG (2 TABLETS) IN THE MORNING, 10MG (1 TABLET) IN THE AFTERNOON BETWEEN 2-3PM

REACTIONS (4)
  - Pain [Unknown]
  - Intentional product use issue [Unknown]
  - Malaise [Unknown]
  - Anxiety [Unknown]
